FAERS Safety Report 24826003 (Version 3)
Quarter: 2025Q4

REPORT INFORMATION
  Report Type: Spontaneous
  Country: US (occurrence: US)
  Receive Date: 20250109
  Receipt Date: 20251112
  Transmission Date: 20260118
  Serious: No
  Sender: PARATEK PHARMACEUTICALS
  Company Number: US-PARATEK PHARMACEUTICALS, INC.-2025PTK00007

PATIENT
  Age: 58 Year
  Sex: Female
  Weight: 69.116 kg

DRUGS (14)
  1. NUZYRA [Suspect]
     Active Substance: OMADACYCLINE
     Indication: Cellulitis
     Dosage: UNK
     Route: 048
     Dates: start: 20241231, end: 20250101
  2. NUZYRA [Suspect]
     Active Substance: OMADACYCLINE
     Indication: Wound cellulitis
  3. UNSPECIFIED INGREDIENT [Suspect]
     Active Substance: UNSPECIFIED INGREDIENT
     Indication: Breast cancer metastatic
     Dosage: UNK, EVERY 3RD WEEK
  4. GABAPENTIN [Concomitant]
     Active Substance: GABAPENTIN
  5. FUROSEMIDE [Concomitant]
     Active Substance: FUROSEMIDE
  6. TRAMADOL [Concomitant]
     Active Substance: TRAMADOL
  7. KCL [Concomitant]
     Active Substance: POTASSIUM CHLORIDE
  8. FAMOTIDINE [Concomitant]
     Active Substance: FAMOTIDINE
  9. ACETAMINOPHEN\HYDROCODONE [Concomitant]
     Active Substance: ACETAMINOPHEN\HYDROCODONE
  10. NALOXONE [Concomitant]
     Active Substance: NALOXONE
  11. BUSPIRONE [Concomitant]
     Active Substance: BUSPIRONE HYDROCHLORIDE
  12. SUCRALFATE [Concomitant]
     Active Substance: SUCRALFATE
  13. MODAFINIL [Concomitant]
     Active Substance: MODAFINIL
  14. METHOCARBAMOL [Concomitant]
     Active Substance: METHOCARBAMOL

REACTIONS (1)
  - Vomiting [Recovered/Resolved]

NARRATIVE: CASE EVENT DATE: 20250101
